FAERS Safety Report 24768681 (Version 1)
Quarter: 2024Q4

REPORT INFORMATION
  Report Type: Report from Study
  Country: US (occurrence: US)
  Receive Date: 20241224
  Receipt Date: 20241224
  Transmission Date: 20250115
  Serious: Yes (Hospitalization, Other)
  Sender: VALIDUS
  Company Number: US-VALIDUS PHARMACEUTICALS LLC-US-VDP-2024-019502

PATIENT

DRUGS (36)
  1. LASIX [Suspect]
     Active Substance: FUROSEMIDE
     Indication: Product used for unknown indication
     Dosage: UNK
     Route: 065
  2. TYVASO [Suspect]
     Active Substance: TREPROSTINIL
     Indication: Pulmonary arterial hypertension
     Dosage: UNK, INHALATION
     Route: 055
     Dates: start: 20230417, end: 20240723
  3. TYVASO [Suspect]
     Active Substance: TREPROSTINIL
     Dosage: 16 MICROGRAM, QID
     Route: 055
  4. TYVASO [Suspect]
     Active Substance: TREPROSTINIL
     Dosage: 64 MICROGRAM, QID
     Route: 055
  5. TYVASO [Suspect]
     Active Substance: TREPROSTINIL
     Indication: Pulmonary arterial hypertension
     Dosage: UNK, INHALATION
     Route: 055
  6. TYVASO [Suspect]
     Active Substance: TREPROSTINIL
     Indication: Pulmonary arterial hypertension
     Dosage: UNK, INHALATION
     Route: 055
  7. UPTRAVI [Suspect]
     Active Substance: SELEXIPAG
     Indication: Pulmonary arterial hypertension
     Dosage: UNK
     Route: 048
     Dates: start: 202407, end: 202407
  8. UPTRAVI [Suspect]
     Active Substance: SELEXIPAG
     Dosage: 400 MICROGRAM, BID
     Route: 048
     Dates: start: 202407, end: 2024
  9. UPTRAVI [Suspect]
     Active Substance: SELEXIPAG
     Dosage: 200 MICROGRAM, BID
     Route: 048
     Dates: start: 2024, end: 2024
  10. UPTRAVI [Suspect]
     Active Substance: SELEXIPAG
     Dosage: 600 MICROGRAM, BID
     Route: 048
     Dates: start: 2024, end: 2024
  11. UPTRAVI [Suspect]
     Active Substance: SELEXIPAG
     Dosage: 1000 MICROGRAM, BID
     Route: 048
     Dates: start: 2024, end: 2024
  12. UPTRAVI [Suspect]
     Active Substance: SELEXIPAG
     Dosage: 1200 MICROGRAM, BID
     Route: 048
     Dates: start: 2024, end: 2024
  13. UPTRAVI [Suspect]
     Active Substance: SELEXIPAG
     Dosage: 1400 MICROGRAM, BID
     Route: 048
     Dates: start: 2024, end: 2024
  14. FERROUS SULFATE [Suspect]
     Active Substance: FERROUS SULFATE
     Indication: Product used for unknown indication
     Dosage: UNK
     Route: 065
  15. ELIQUIS [Concomitant]
     Active Substance: APIXABAN
     Indication: Product used for unknown indication
     Dosage: UNK
     Route: 065
  16. PANTOPRAZOLE SODIUM [Concomitant]
     Active Substance: PANTOPRAZOLE SODIUM
     Indication: Product used for unknown indication
     Dosage: UNK
     Route: 065
  17. VITAMIN C [Concomitant]
     Active Substance: ASCORBIC ACID
     Indication: Product used for unknown indication
     Dosage: UNK
     Route: 065
  18. ERGOCALCIFEROL [Concomitant]
     Active Substance: ERGOCALCIFEROL
     Indication: Product used for unknown indication
     Dosage: UNK
     Route: 065
  19. LIPITOR [Concomitant]
     Active Substance: ATORVASTATIN CALCIUM
     Indication: Product used for unknown indication
     Dosage: UNK
     Route: 065
  20. SILDENAFIL CITRATE [Concomitant]
     Active Substance: SILDENAFIL CITRATE
     Indication: Product used for unknown indication
     Dosage: UNK
     Route: 065
  21. POTASSIUM CHLORIDE [Concomitant]
     Active Substance: POTASSIUM CHLORIDE
     Indication: Product used for unknown indication
     Dosage: UNK
     Route: 065
  22. VITAMINS NOS [Concomitant]
     Active Substance: VITAMINS
     Indication: Product used for unknown indication
     Dosage: UNK
     Route: 065
  23. CALCIUM [Concomitant]
     Active Substance: CALCIUM
     Indication: Product used for unknown indication
     Dosage: UNK
     Route: 065
  24. SOTALOL HYDROCHLORIDE [Concomitant]
     Active Substance: SOTALOL HYDROCHLORIDE
     Indication: Product used for unknown indication
     Dosage: UNK
     Route: 065
  25. OXYGEN [Concomitant]
     Active Substance: OXYGEN
     Indication: Product used for unknown indication
     Dosage: UNK
     Route: 065
  26. METFORMIN HYDROCHLORIDE [Concomitant]
     Active Substance: METFORMIN HYDROCHLORIDE
     Indication: Product used for unknown indication
     Dosage: UNK
     Route: 065
  27. MAGNESIUM [Concomitant]
     Active Substance: MAGNESIUM
     Indication: Product used for unknown indication
     Dosage: UNK
     Route: 065
  28. ACETAMINOPHEN [Concomitant]
     Active Substance: ACETAMINOPHEN
     Indication: Product used for unknown indication
     Dosage: UNK
     Route: 065
  29. DIGOXIN [Concomitant]
     Active Substance: DIGOXIN
     Indication: Product used for unknown indication
     Dosage: UNK
     Route: 065
  30. AMBRISENTAN [Concomitant]
     Active Substance: AMBRISENTAN
     Indication: Product used for unknown indication
     Dosage: UNK
     Route: 065
  31. ASPIRIN [Concomitant]
     Active Substance: ASPIRIN
     Indication: Product used for unknown indication
     Dosage: UNK
     Route: 065
  32. METHIMAZOLE [Concomitant]
     Active Substance: METHIMAZOLE
     Indication: Product used for unknown indication
     Dosage: UNK
     Route: 065
  33. PLAVIX [Concomitant]
     Active Substance: CLOPIDOGREL BISULFATE
     Indication: Product used for unknown indication
     Dosage: UNK
     Route: 065
  34. SODIUM CHLORIDE [Concomitant]
     Active Substance: SODIUM CHLORIDE
     Indication: Product used for unknown indication
     Dosage: UNK
     Route: 065
  35. VITAMIN B12 [Concomitant]
     Active Substance: CYANOCOBALAMIN
     Indication: Product used for unknown indication
     Dosage: UNK
     Route: 065
  36. BUMETANIDE [Concomitant]
     Active Substance: BUMETANIDE
     Indication: Product used for unknown indication
     Dosage: UNK
     Route: 065

REACTIONS (30)
  - Gastrointestinal haemorrhage [Not Recovered/Not Resolved]
  - Pneumothorax [Unknown]
  - Internal haemorrhage [Unknown]
  - Cardiac failure [Unknown]
  - Atrial fibrillation [Unknown]
  - Full blood count abnormal [Unknown]
  - Ascites [Unknown]
  - Anaemia [Recovering/Resolving]
  - Pollakiuria [Unknown]
  - Dyspnoea [Unknown]
  - Chest discomfort [Unknown]
  - Confusional state [Unknown]
  - Peripheral swelling [Unknown]
  - Pain in extremity [Unknown]
  - Apathy [Unknown]
  - Drug intolerance [Unknown]
  - Pain [Unknown]
  - Abdominal pain upper [Unknown]
  - Swelling [Unknown]
  - Fear [Unknown]
  - Fluid retention [Unknown]
  - Oedema peripheral [Unknown]
  - Nocturnal dyspnoea [Unknown]
  - Extra dose administered [Unknown]
  - Fatigue [Unknown]
  - Constipation [Unknown]
  - Pruritus [Unknown]
  - Dizziness [Unknown]
  - Asthenia [Unknown]
  - Diarrhoea [Unknown]

NARRATIVE: CASE EVENT DATE: 20240101
